FAERS Safety Report 15014569 (Version 1)
Quarter: 2018Q2

REPORT INFORMATION
  Report Type: Report from Study
  Country: ES (occurrence: ES)
  Receive Date: 20180615
  Receipt Date: 20180615
  Transmission Date: 20180711
  Serious: Yes (Hospitalization)
  Sender: FDA-Public Use
  Company Number: ES-TEVA-2018-ES-908902

PATIENT
  Age: 65 Year
  Sex: Male

DRUGS (5)
  1. TACROLIMUS (2694A) [Concomitant]
     Active Substance: TACROLIMUS
     Indication: LIVER TRANSPLANT
     Dosage: 6 MILLIGRAM DAILY;
     Route: 048
     Dates: start: 20141212
  2. AMOXICILINA + ?CIDO CLAVUL?NICO [Suspect]
     Active Substance: AMOXICILLIN\CLAVULANIC ACID
     Indication: PROSTATITIS
     Dosage: 1.5 MILLIGRAM DAILY;
     Route: 048
     Dates: start: 20170821, end: 20170908
  3. PRAVASTATINA SODICA (7192SO) [Concomitant]
     Indication: DYSLIPIDAEMIA
     Dosage: 10 MILLIGRAM DAILY;
     Route: 048
     Dates: start: 20160419, end: 20171006
  4. RAMIPRIL (2497A) [Concomitant]
     Active Substance: RAMIPRIL
     Indication: HYPERTENSION
     Dosage: 5 MILLIGRAM DAILY;
     Route: 048
     Dates: start: 20160419, end: 20171006
  5. MICOFENOLATO DE MOFETILO (7330LM) [Concomitant]
     Indication: LIVER TRANSPLANT
     Dosage: 1 GRAM DAILY;
     Route: 048
     Dates: start: 20141212

REACTIONS (2)
  - Diarrhoea [Recovered/Resolved]
  - Dehydration [Recovered/Resolved]

NARRATIVE: CASE EVENT DATE: 201709
